FAERS Safety Report 20477542 (Version 3)
Quarter: 2022Q1

REPORT INFORMATION
  Report Type: Spontaneous
  Country: US (occurrence: US)
  Receive Date: 20220216
  Receipt Date: 20220302
  Transmission Date: 20220423
  Serious: No
  Sender: FDA-Public Use
  Company Number: US-NOVARTISTESTPH-NVSC2022US034976

PATIENT
  Sex: Male

DRUGS (1)
  1. COSENTYX [Suspect]
     Active Substance: SECUKINUMAB
     Indication: Product used for unknown indication
     Dosage: 150 MG, QMO
     Route: 065

REACTIONS (4)
  - Injection site pain [Unknown]
  - Injection site discomfort [Unknown]
  - Product dose omission issue [Unknown]
  - Accidental exposure to product [Unknown]
